FAERS Safety Report 13040426 (Version 1)
Quarter: 2016Q4

REPORT INFORMATION
  Report Type: Spontaneous
  Country: US (occurrence: US)
  Receive Date: 20161219
  Receipt Date: 20161219
  Transmission Date: 20170207
  Serious: No
  Sender: FDA-Public Use
  Company Number: US-SA-2016SA138306

PATIENT
  Sex: Female
  Weight: 74.84 kg

DRUGS (5)
  1. AMITRIPTYLINE [Concomitant]
     Active Substance: AMITRIPTYLINE
     Indication: NERVE INJURY
     Route: 048
  2. CLOPIDOGREL BISULFATE. [Suspect]
     Active Substance: CLOPIDOGREL BISULFATE
     Indication: CEREBROVASCULAR ACCIDENT
     Route: 048
     Dates: start: 2009
  3. LYRICA [Concomitant]
     Active Substance: PREGABALIN
     Indication: NEURALGIA
     Route: 048
     Dates: start: 2014, end: 20160714
  4. NAPROXEN. [Concomitant]
     Active Substance: NAPROXEN
     Route: 048
  5. CAPSAICIN. [Concomitant]
     Active Substance: CAPSAICIN
     Indication: ARTHRALGIA

REACTIONS (1)
  - Contusion [Unknown]
